FAERS Safety Report 8071826 (Version 3)
Quarter: 2013Q4

REPORT INFORMATION
  Report Type: Report from Study
  Country: GB (occurrence: GB)
  Receive Date: 20110805
  Receipt Date: 20131105
  Transmission Date: 20140711
  Serious: Yes (Hospitalization)
  Sender: FDA-Public Use
  Company Number: PHHO2011GB12982

PATIENT
  Sex: 0

DRUGS (2)
  1. IMATINIB [Suspect]
     Indication: ACUTE LYMPHOCYTIC LEUKAEMIA
     Dosage: 300 MG, UNK
     Dates: start: 20110709
  2. DEXAMETHASONE [Suspect]

REACTIONS (3)
  - Extrasystoles [Recovered/Resolved]
  - Device dislocation [Recovered/Resolved]
  - Weight increased [Recovered/Resolved]
